FAERS Safety Report 19219208 (Version 1)
Quarter: 2021Q2

REPORT INFORMATION
  Report Type: Spontaneous
  Country: US (occurrence: US)
  Receive Date: 20210506
  Receipt Date: 20210506
  Transmission Date: 20210717
  Serious: Yes (Other)
  Sender: FDA-Public Use
  Company Number: US-ROCHE-2616658

PATIENT
  Age: 69 Year
  Sex: Female
  Weight: 85.81 kg

DRUGS (2)
  1. ESBRIET [Suspect]
     Active Substance: PIRFENIDONE
     Indication: PULMONARY FIBROSIS
     Dosage: TAKE 1 CAPSULE 2 TIMES A DAY X1 WEEK, THEN 2 CAPS 3 TIMES DAILY X 1 WEEK, THEN 2 CAPS 3 TIMES A DAY
     Route: 048
     Dates: start: 20200422, end: 20200505
  2. ESBRIET [Suspect]
     Active Substance: PIRFENIDONE
     Route: 048
     Dates: start: 20200417

REACTIONS (7)
  - Decreased appetite [Unknown]
  - Off label use [Unknown]
  - Intentional product use issue [Unknown]
  - Vomiting [Recovered/Resolved]
  - Diarrhoea [Recovered/Resolved]
  - Drug intolerance [Unknown]
  - Nausea [Recovered/Resolved]

NARRATIVE: CASE EVENT DATE: 20200429
